FAERS Safety Report 15179620 (Version 1)
Quarter: 2018Q3

REPORT INFORMATION
  Report Type: Spontaneous
  Country: US (occurrence: US)
  Receive Date: 20180723
  Receipt Date: 20180723
  Transmission Date: 20181010
  Serious: No
  Sender: FDA-Public Use
  Company Number: US-TEVA-788721ACC

PATIENT
  Sex: Female

DRUGS (1)
  1. NICOTINE GUM [Suspect]
     Active Substance: NICOTINE
     Indication: SMOKING CESSATION THERAPY
     Dosage: GUM
     Route: 048

REACTIONS (1)
  - Tobacco user [Unknown]
